FAERS Safety Report 4808147-2 (Version None)
Quarter: 2005Q4

REPORT INFORMATION
  Report Type: 
  Country: None (occurrence: None)
  Receive Date: 20051021
  Receipt Date: 20041227
  Transmission Date: 20060501
  Serious: No
  Sender: FDA-Public Use
  Company Number: USA041286955

PATIENT
  Age: 51 Year
  Sex: Male

DRUGS (3)
  1. ZYPREXA [Suspect]
     Indication: AFFECTIVE DISORDER
     Dosage: 20 MG DAY
     Dates: start: 19970101
  2. EFFEXOR XR [Concomitant]
  3. VALIUM [Concomitant]

REACTIONS (4)
  - FOOD CRAVING [None]
  - POLLAKIURIA [None]
  - THIRST [None]
  - WHITE BLOOD CELL COUNT DECREASED [None]
